FAERS Safety Report 23473177 (Version 1)
Quarter: 2024Q1

REPORT INFORMATION
  Report Type: Spontaneous
  Country: IN (occurrence: IN)
  Receive Date: 20240203
  Receipt Date: 20240203
  Transmission Date: 20240409
  Serious: Yes (Other)
  Sender: FDA-Public Use
  Company Number: IN-MACLEODS PHARMACEUTICALS US LTD-MAC2024045575

PATIENT

DRUGS (2)
  1. PANTOPRAZOLE [Suspect]
     Active Substance: PANTOPRAZOLE
     Indication: Chronic gastritis
     Dosage: 80 MILLIGRAM, QD (STEPPED IT FOR THE LAST THREE YEARS. (CHRONIC USE))
     Route: 065
  2. PANTOPRAZOLE [Suspect]
     Active Substance: PANTOPRAZOLE
     Dosage: 40 MILLIGRAM, QD INITIALLY FOR TWO WEEKS.
     Route: 065

REACTIONS (2)
  - Toxic optic neuropathy [Unknown]
  - Self-medication [Unknown]
